FAERS Safety Report 5165579-3 (Version None)
Quarter: 2006Q4

REPORT INFORMATION
  Report Type: 
  Country: None (occurrence: None)
  Receive Date: 20061206
  Receipt Date: 20060915
  Transmission Date: 20070319
  Serious: Yes (Other)
  Sender: FDA-Public Use
  Company Number: BE-GLAXOSMITHKLINE-B0438556A

PATIENT
  Age: 75 Year
  Sex: Male
  Weight: 85 kg

DRUGS (7)
  1. LAMOTRIGINE [Suspect]
     Dosage: 100MG PER DAY
     Route: 048
     Dates: start: 20060327
  2. SIPRALEXA [Concomitant]
     Indication: DRUG USE FOR UNKNOWN INDICATION
     Dosage: 1TAB PER DAY
     Route: 048
  3. GLIMEPIRIDE [Concomitant]
     Dosage: .5TAB PER DAY
     Route: 048
  4. DEPAKENE [Concomitant]
  5. SERTRALINE HCL [Concomitant]
  6. ASAFLOW [Concomitant]
     Dosage: 1TAB PER DAY
     Route: 048
  7. PRAZEPAM [Concomitant]
     Route: 048

REACTIONS (4)
  - DEPRESSION [None]
  - DIABETES MELLITUS [None]
  - HYPERGLYCAEMIA [None]
  - WEIGHT INCREASED [None]
